FAERS Safety Report 14034026 (Version 2)
Quarter: 2017Q4

REPORT INFORMATION
  Report Type: Report from Study
  Country: JP (occurrence: JP)
  Receive Date: 20171003
  Receipt Date: 20171114
  Transmission Date: 20180321
  Serious: Yes (Life-Threatening, Disabling)
  Sender: FDA-Public Use
  Company Number: JP-ACTELION-A-CH2017-159944

PATIENT
  Age: 71 Year
  Sex: Female

DRUGS (11)
  1. CARBOCISTEINE [Concomitant]
     Active Substance: CARBOCYSTEINE
  2. MUCOSOLVAN [Concomitant]
     Active Substance: AMBROXOL HYDROCHLORIDE
  3. FEXOFENADINE HYDROCHLORIDE. [Concomitant]
     Active Substance: FEXOFENADINE HYDROCHLORIDE
  4. PARIET [Concomitant]
     Active Substance: RABEPRAZOLE SODIUM
  5. MAGMITT [Concomitant]
     Active Substance: MAGNESIUM OXIDE
  6. CRESTOR [Concomitant]
     Active Substance: ROSUVASTATIN CALCIUM
  7. PLAVIX [Concomitant]
     Active Substance: CLOPIDOGREL BISULFATE
  8. REVATIO [Concomitant]
     Active Substance: SILDENAFIL CITRATE
  9. BERASUS [Concomitant]
     Active Substance: BERAPROST SODIUM
  10. OPSUMIT [Suspect]
     Active Substance: MACITENTAN
     Indication: PULMONARY ARTERIAL HYPERTENSION
     Dosage: 10 MG, OD
     Route: 048
     Dates: start: 20160112
  11. WARFARIN [Concomitant]
     Active Substance: WARFARIN

REACTIONS (5)
  - Cardiac pacemaker insertion [Unknown]
  - Atrioventricular block complete [Recovering/Resolving]
  - Eyelid ptosis [Recovering/Resolving]
  - Syncope [Recovering/Resolving]
  - Myasthenia gravis [Recovering/Resolving]

NARRATIVE: CASE EVENT DATE: 201604
